FAERS Safety Report 13576145 (Version 2)
Quarter: 2017Q2

REPORT INFORMATION
  Report Type: Report from Study
  Country: JP (occurrence: JP)
  Receive Date: 20170524
  Receipt Date: 20170601
  Transmission Date: 20170830
  Serious: Yes (Hospitalization)
  Sender: FDA-Public Use
  Company Number: JP-ROCHE-1935714

PATIENT
  Age: 62 Year
  Sex: Male
  Weight: 71.5 kg

DRUGS (9)
  1. VINCRISTINE [Suspect]
     Active Substance: VINCRISTINE
     Indication: NON-HODGKIN^S LYMPHOMA UNSPECIFIED HISTOLOGY INDOLENT
     Dosage: ON 07/NOV/2013, MOST RECENT DOSE 2 MG PRIOR TO SAE
     Route: 050
     Dates: start: 20130724
  2. CANAGLIFLOZIN [Concomitant]
     Active Substance: CANAGLIFLOZIN
     Indication: DIABETES MELLITUS
     Route: 065
     Dates: start: 20170204
  3. CYCLOPHOSPHAMIDE. [Suspect]
     Active Substance: CYCLOPHOSPHAMIDE
     Indication: NON-HODGKIN^S LYMPHOMA UNSPECIFIED HISTOLOGY INDOLENT
     Dosage: ON 07/NOV/2013, MOST RECENT DOSE 1350 MG PRIOR TO SAE
     Route: 042
     Dates: start: 20130724
  4. DOXORUBICIN [Suspect]
     Active Substance: DOXORUBICIN
     Indication: NON-HODGKIN^S LYMPHOMA UNSPECIFIED HISTOLOGY INDOLENT
     Dosage: ON 07/NOV/2013, MOST RECENT DOSE 90 MG PRIOR TO SAE
     Route: 042
     Dates: start: 20130724
  5. AMVALO [Concomitant]
     Indication: HYPERTENSION
     Route: 065
     Dates: start: 20160127
  6. TENELIGLIPTIN HYDROBROMIDE [Concomitant]
     Active Substance: TENELIGLIPTIN
     Indication: DIABETES MELLITUS
     Route: 065
     Dates: start: 20140208
  7. PREDNISONE. [Suspect]
     Active Substance: PREDNISONE
     Indication: NON-HODGKIN^S LYMPHOMA UNSPECIFIED HISTOLOGY INDOLENT
     Dosage: ON 11/NOV/2013, MOST RECENT DOSE 100 MG PRIOR TO SAE
     Route: 048
     Dates: start: 20130723
  8. OBINUTUZUMAB [Suspect]
     Active Substance: OBINUTUZUMAB
     Indication: NON-HODGKIN^S LYMPHOMA UNSPECIFIED HISTOLOGY INDOLENT
     Dosage: MOST RECENT DOSE ON 22/OCT/2015 PRIOR TO SERIOUS ADVERSE EVENT WITH VOLUME 250 ML AND DOSE CONCENTRA
     Route: 042
     Dates: start: 20130723
  9. ATORVASTATIN CALCIUM. [Concomitant]
     Active Substance: ATORVASTATIN CALCIUM
     Indication: HYPERLIPIDAEMIA
     Route: 065
     Dates: start: 20140618

REACTIONS (1)
  - Gastric adenoma [Recovered/Resolved]

NARRATIVE: CASE EVENT DATE: 20170515
